FAERS Safety Report 7319027-5 (Version None)
Quarter: 2011Q1

REPORT INFORMATION
  Report Type: 
  Country: None (occurrence: None)
  Receive Date: 20110214
  Receipt Date: 20110207
  Transmission Date: 20110831
  Serious: Yes (Hospitalization, Other)
  Sender: FDA-Public Use
  Company Number: 027015

PATIENT
  Sex: Female
  Weight: 58.2 kg

DRUGS (2)
  1. CERTOLIZUMAB PEGOL (CERTOLIZUMAB PEGOL) [Suspect]
     Indication: CROHN'S DISEASE
     Dosage: (400 MG 1X/2 WEEKS, WEEKS 0, 2 AND 4 SUBCUTANEOUS) (400 MG 1X/4 WEEKS SUBCUTANEOUS)
     Route: 058
     Dates: start: 20090415, end: 20090101
  2. CERTOLIZUMAB PEGOL (CERTOLIZUMAB PEGOL) [Suspect]
     Indication: CROHN'S DISEASE
     Dosage: (400 MG 1X/2 WEEKS, WEEKS 0, 2 AND 4 SUBCUTANEOUS) (400 MG 1X/4 WEEKS SUBCUTANEOUS)
     Route: 058
     Dates: start: 20090501, end: 20110107

REACTIONS (4)
  - ABDOMINAL PAIN [None]
  - PYREXIA [None]
  - INFLAMMATION [None]
  - C-REACTIVE PROTEIN INCREASED [None]
